FAERS Safety Report 19983249 (Version 2)
Quarter: 2021Q4

REPORT INFORMATION
  Report Type: Spontaneous
  Country: US (occurrence: US)
  Receive Date: 20211022
  Receipt Date: 20211125
  Transmission Date: 20220303
  Serious: Yes (Other)
  Sender: FDA-Public Use
  Company Number: US-CIPLA LTD.-2021US07012

PATIENT

DRUGS (6)
  1. OLANZAPINE [Interacting]
     Active Substance: OLANZAPINE
     Indication: Schizophrenia
     Dosage: 40 MG/DAY
     Route: 048
  2. OLANZAPINE [Interacting]
     Active Substance: OLANZAPINE
     Dosage: 20 MG/DAY
     Route: 048
  3. GUANFACINE [Suspect]
     Active Substance: GUANFACINE
     Indication: Schizophrenia
     Dosage: 2 MG/DAY
     Route: 048
  4. OXCARBAZEPINE [Suspect]
     Active Substance: OXCARBAZEPINE
     Indication: Schizophrenia
     Dosage: 1200MG/D
     Route: 048
  5. OXCARBAZEPINE [Suspect]
     Active Substance: OXCARBAZEPINE
     Dosage: 1800MG/D
     Route: 048
  6. PIMAVANSERIN [Interacting]
     Active Substance: PIMAVANSERIN
     Indication: Schizophrenia
     Dosage: 34 MG/D
     Route: 048

REACTIONS (5)
  - Drug interaction [Unknown]
  - Aggression [Not Recovered/Not Resolved]
  - Therapeutic product effect incomplete [Unknown]
  - Condition aggravated [Not Recovered/Not Resolved]
  - Psychotic disorder [Not Recovered/Not Resolved]
